FAERS Safety Report 25748307 (Version 3)
Quarter: 2025Q4

REPORT INFORMATION
  Report Type: Report from Study
  Country: US (occurrence: US)
  Receive Date: 20250902
  Receipt Date: 20251107
  Transmission Date: 20260118
  Serious: Yes (Other)
  Sender: ABBVIE
  Company Number: US-ABBVIE-6174318

PATIENT
  Age: 66 Year
  Sex: Male

DRUGS (1)
  1. RINVOQ [Suspect]
     Active Substance: UPADACITINIB
     Indication: Rheumatoid arthritis
     Route: 048
     Dates: start: 20200216

REACTIONS (9)
  - Autoimmune disorder [Unknown]
  - Arthralgia [Unknown]
  - Amnesia [Unknown]
  - Cognitive disorder [Unknown]
  - Dysarthria [Unknown]
  - Dysphagia [Unknown]
  - Brain stem syndrome [Unknown]
  - Memory impairment [Unknown]
  - Mastication disorder [Unknown]

NARRATIVE: CASE EVENT DATE: 20250801
